FAERS Safety Report 14878749 (Version 1)
Quarter: 2018Q2

REPORT INFORMATION
  Report Type: Spontaneous
  Country: US (occurrence: US)
  Receive Date: 20180511
  Receipt Date: 20180511
  Transmission Date: 20180711
  Serious: No
  Sender: FDA-Public Use
  Company Number: US-009507513-1805USA000985

PATIENT
  Age: 61 Year
  Sex: Female

DRUGS (1)
  1. SINEMET [Suspect]
     Active Substance: CARBIDOPA\LEVODOPA
     Indication: PARKINSON^S DISEASE
     Dosage: 1.5 TABLET, FOUR TIMES DAILY
     Route: 048
     Dates: start: 2015, end: 20180131

REACTIONS (2)
  - Musculoskeletal stiffness [Unknown]
  - Dyskinesia [Unknown]
